FAERS Safety Report 9790938 (Version 1)
Quarter: 2013Q4

REPORT INFORMATION
  Report Type: Report from Study
  Country: US (occurrence: US)
  Receive Date: 20131231
  Receipt Date: 20131231
  Transmission Date: 20140711
  Serious: Yes (Death)
  Sender: FDA-Public Use
  Company Number: US-BAYER-2013-158009

PATIENT
  Age: 51 Year
  Sex: Female

DRUGS (1)
  1. ADEMPAS [Suspect]
     Indication: COR PULMONALE CHRONIC
     Dosage: 0.5 MG, TID
     Route: 048

REACTIONS (1)
  - Death [Fatal]
